FAERS Safety Report 16201934 (Version 1)
Quarter: 2019Q2

REPORT INFORMATION
  Report Type: Spontaneous
  Country: US (occurrence: US)
  Receive Date: 20190415
  Receipt Date: 20190415
  Transmission Date: 20190711
  Serious: No
  Sender: FDA-Public Use
  Company Number: None

PATIENT
  Sex: Female

DRUGS (1)
  1. ALBUTEROL 0.083% (2.5%) VIA NEBULIZER [Suspect]
     Active Substance: ALBUTEROL

REACTIONS (3)
  - Tremor [None]
  - Psychomotor hyperactivity [None]
  - Palpitations [None]
